FAERS Safety Report 19007290 (Version 2)
Quarter: 2021Q1

REPORT INFORMATION
  Report Type: Report from Study
  Country: None (occurrence: US)
  Receive Date: 20210315
  Receipt Date: 20210319
  Transmission Date: 20210420
  Serious: Yes (Hospitalization)
  Sender: FDA-Public Use
  Company Number: US-ABBVIE-21K-163-3814656-00

PATIENT
  Sex: Male
  Weight: 51.76 kg

DRUGS (5)
  1. SEROQUEL [Concomitant]
     Active Substance: QUETIAPINE FUMARATE
     Indication: HALLUCINATION
  2. COVID?19 VACCINE [Concomitant]
     Dosage: MFR: PFIZER
     Route: 030
     Dates: start: 20210204, end: 20210204
  3. DUOPA [Suspect]
     Active Substance: CARBIDOPA\LEVODOPA
  4. COVID?19 VACCINE [Concomitant]
     Indication: COVID-19 IMMUNISATION
     Dosage: MFR: PFIZER
     Route: 030
     Dates: start: 202101, end: 202101
  5. DUOPA [Suspect]
     Active Substance: CARBIDOPA\LEVODOPA
     Indication: PARKINSON^S DISEASE
     Route: 050
     Dates: start: 20161101

REACTIONS (5)
  - Chromaturia [Recovered/Resolved]
  - Urinary tract infection [Recovering/Resolving]
  - Insomnia [Not Recovered/Not Resolved]
  - Anaemia [Unknown]
  - Hallucination [Recovered/Resolved]

NARRATIVE: CASE EVENT DATE: 2021
